FAERS Safety Report 17074204 (Version 1)
Quarter: 2019Q4

REPORT INFORMATION
  Report Type: Spontaneous
  Country: GB (occurrence: GB)
  Receive Date: 20191126
  Receipt Date: 20191126
  Transmission Date: 20200122
  Serious: Yes (Life-Threatening)
  Sender: FDA-Public Use
  Company Number: GB-TEVA-2019-GB-1140942

PATIENT
  Age: 83 Year
  Sex: Male
  Weight: 82.55 kg

DRUGS (5)
  1. VALSARTAN. [Suspect]
     Active Substance: VALSARTAN
     Indication: HYPERTENSION
     Dosage: 80 + 160MG
     Route: 048
     Dates: start: 20050101, end: 20191016
  2. INDAPAMIDE. [Concomitant]
     Active Substance: INDAPAMIDE
  3. ATORVASTATIN [Concomitant]
     Active Substance: ATORVASTATIN
  4. LERCANIDIPINE [Concomitant]
     Active Substance: LERCANIDIPINE
  5. METFORMIN [Concomitant]
     Active Substance: METFORMIN HYDROCHLORIDE

REACTIONS (1)
  - Bladder cancer [Unknown]
